FAERS Safety Report 6791153-9 (Version None)
Quarter: 2010Q2

REPORT INFORMATION
  Report Type: 
  Country: None (occurrence: None)
  Receive Date: 20100623
  Receipt Date: 20100623
  Transmission Date: 20101027
  Serious: Yes (Other)
  Sender: FDA-Public Use
  Company Number: None

PATIENT
  Sex: Female
  Weight: 28.5766 kg

DRUGS (1)
  1. SINGULAIR [Suspect]
     Indication: HYPERSENSITIVITY
     Dosage: 5MG EVERY MORNING DAIL PO
     Route: 048
     Dates: start: 20090415, end: 20100607

REACTIONS (3)
  - PRECOCIOUS PUBERTY [None]
  - SKIN ODOUR ABNORMAL [None]
  - WEIGHT INCREASED [None]
